FAERS Safety Report 23863302 (Version 1)
Quarter: 2024Q2

REPORT INFORMATION
  Report Type: Spontaneous
  Country: DE (occurrence: DE)
  Receive Date: 20240516
  Receipt Date: 20240516
  Transmission Date: 20240716
  Serious: Yes (Other)
  Sender: FDA-Public Use
  Company Number: DE-AMGEN-DEUSP2024088776

PATIENT
  Age: 55 Year
  Sex: Male

DRUGS (4)
  1. ADALIMUMAB [Suspect]
     Active Substance: ADALIMUMAB\ISOPROPYL ALCOHOL
     Indication: Rheumatoid arthritis
     Dosage: UNK, DOSAGE1: UNIT-NOT AVAILABLE
     Route: 065
  2. BLINATUMOMAB [Suspect]
     Active Substance: BLINATUMOMAB
     Dosage: 9 MICROGRAM, QD (CONTINUOUS INFUSION OVER 5 DAYS- TOTAL DOSE OF 38.5 UG)
     Route: 042
  3. BLINATUMOMAB [Suspect]
     Active Substance: BLINATUMOMAB
     Indication: Rheumatoid arthritis
     Dosage: 9 MICROGRAM, QD (SECOND 5-DAY INFUSION WITH TOTAL DOSE OF 38.5 UG)
     Route: 042
  4. ABATACEPT [Concomitant]
     Active Substance: ABATACEPT
     Indication: Rheumatoid arthritis
     Dosage: UNK, QWK
     Route: 058

REACTIONS (7)
  - Hypogammaglobulinaemia [Unknown]
  - Pyrexia [Unknown]
  - Multiple-drug resistance [Unknown]
  - Immunoglobulins increased [Unknown]
  - C-reactive protein increased [Recovered/Resolved]
  - Drug effective for unapproved indication [Unknown]
  - Off label use [Unknown]
